FAERS Safety Report 13256029 (Version 1)
Quarter: 2017Q1

REPORT INFORMATION
  Report Type: Spontaneous
  Country: US (occurrence: US)
  Receive Date: 20170218
  Receipt Date: 20170218
  Transmission Date: 20170428
  Serious: Yes (Other)
  Sender: FDA-Public Use
  Company Number: None

PATIENT
  Age: 25 Year
  Sex: Female
  Weight: 58.5 kg

DRUGS (5)
  1. LO LOESTRIN FE [Suspect]
     Active Substance: ETHINYL ESTRADIOL\NORETHINDRONE ACETATE
     Indication: CONTRACEPTION
     Route: 048
     Dates: start: 20161016, end: 20170118
  2. PROBIOTIC [Concomitant]
     Active Substance: PROBIOTICS NOS
  3. GABA/INOSITOL 5-HTP [Concomitant]
  4. MULTIVITAMIN [Concomitant]
     Active Substance: VITAMINS
  5. ORTHO TRI CYCLEN LO [Suspect]
     Active Substance: ETHINYL ESTRADIOL\NORGESTIMATE
     Indication: CONTRACEPTION
     Route: 048
     Dates: start: 20100620, end: 20161016

REACTIONS (5)
  - Anxiety [None]
  - Metrorrhagia [None]
  - Suicidal ideation [None]
  - Amenorrhoea [None]
  - Panic attack [None]

NARRATIVE: CASE EVENT DATE: 20170118
